FAERS Safety Report 20109726 (Version 2)
Quarter: 2021Q4

REPORT INFORMATION
  Report Type: Spontaneous
  Country: US (occurrence: US)
  Receive Date: 20211124
  Receipt Date: 20211221
  Transmission Date: 20220303
  Serious: No
  Sender: FDA-Public Use
  Company Number: US-LUPIN PHARMACEUTICALS INC.-2021-22555

PATIENT
  Sex: Male

DRUGS (1)
  1. ALBUTEROL SULFATE [Suspect]
     Active Substance: ALBUTEROL SULFATE
     Indication: Cough
     Dosage: UNK, (EVERY OTHER DAY OR ONCE DAILY)
     Dates: start: 2021

REACTIONS (4)
  - Device delivery system issue [Unknown]
  - Expired product administered [Unknown]
  - Product packaging quantity issue [Unknown]
  - No adverse event [Unknown]
